FAERS Safety Report 6185842-7 (Version None)
Quarter: 2009Q2

REPORT INFORMATION
  Report Type: 
  Country: None (occurrence: None)
  Receive Date: 20090511
  Receipt Date: 20090501
  Transmission Date: 20091009
  Serious: Yes (Hospitalization)
  Sender: FDA-Public Use
  Company Number: A0774921A

PATIENT
  Age: 67 Year
  Sex: Male
  Weight: 93.2 kg

DRUGS (5)
  1. AVANDIA [Suspect]
     Dosage: 4MG PER DAY
     Route: 048
     Dates: start: 19990820, end: 20070615
  2. GLUCOTROL XL [Concomitant]
  3. LIPITOR [Concomitant]
  4. FUROSEMIDE [Concomitant]
  5. METOPROLOL [Concomitant]

REACTIONS (2)
  - CARDIAC FAILURE CONGESTIVE [None]
  - MYOCARDIAL INFARCTION [None]
